FAERS Safety Report 24448276 (Version 4)
Quarter: 2025Q1

REPORT INFORMATION
  Report Type: Spontaneous
  Country: US (occurrence: US)
  Receive Date: 20241017
  Receipt Date: 20250117
  Transmission Date: 20250409
  Serious: Yes (Hospitalization)
  Sender: ABBVIE
  Company Number: US-ABBVIE-5958490

PATIENT
  Age: 38 Year
  Sex: Female
  Weight: 75 kg

DRUGS (1)
  1. LILETTA [Suspect]
     Active Substance: LEVONORGESTREL
     Indication: Product used for unknown indication
     Route: 015
     Dates: start: 20240529

REACTIONS (5)
  - Hospitalisation [Unknown]
  - Procedural pain [Unknown]
  - Depression [Unknown]
  - Vomiting [Unknown]
  - Nausea [Unknown]

NARRATIVE: CASE EVENT DATE: 20240101
